FAERS Safety Report 8359933-6 (Version None)
Quarter: 2012Q2

REPORT INFORMATION
  Report Type: 
  Country: None (occurrence: None)
  Receive Date: 20120515
  Receipt Date: 20120509
  Transmission Date: 20120825
  Serious: Yes (Hospitalization)
  Sender: FDA-Public Use
  Company Number: FR-SANOFI-AVENTIS-2012SA033040

PATIENT
  Age: 59 Year
  Sex: Male
  Weight: 70 kg

DRUGS (5)
  1. CLONAZEPAM [Suspect]
     Route: 048
     Dates: end: 20110406
  2. ESCITALOPRAM [Suspect]
     Dates: end: 20110406
  3. ZOLPIDEM TARTRATE [Suspect]
     Route: 048
     Dates: end: 20110417
  4. SOLIAN [Suspect]
     Indication: SCHIZOPHRENIA
     Route: 048
  5. TRIMEPRAZINE TARTRATE [Suspect]
     Route: 048

REACTIONS (2)
  - FALL [None]
  - EXTRAPYRAMIDAL DISORDER [None]
